FAERS Safety Report 8229720-8 (Version None)
Quarter: 2012Q1

REPORT INFORMATION
  Report Type: 
  Country: None (occurrence: None)
  Receive Date: 20120322
  Receipt Date: 20120320
  Transmission Date: 20120608
  Serious: Yes (Hospitalization, Disabling, Other)
  Sender: FDA-Public Use
  Company Number: US-MERCK-1106USA02211

PATIENT
  Age: 59 Year
  Sex: Female
  Weight: 73 kg

DRUGS (6)
  1. VITAMIN D (UNSPECIFIED) [Concomitant]
     Route: 065
     Dates: start: 20000101
  2. CALCIUM (UNSPECIFIED) [Concomitant]
     Route: 065
     Dates: start: 20000101
  3. FOSAMAX [Suspect]
     Indication: OSTEOPENIA
     Route: 048
     Dates: start: 20000405, end: 20080101
  4. FOSAMAX [Suspect]
     Route: 048
     Dates: start: 20070519, end: 20090901
  5. FOSAMAX PLUS D [Suspect]
     Indication: OSTEOPENIA
     Route: 048
     Dates: start: 20000401, end: 20050701
  6. FOSAMAX [Suspect]
     Route: 048
     Dates: start: 20000401, end: 20080101

REACTIONS (41)
  - NEURITIS [None]
  - THYROID DISORDER [None]
  - SPONDYLOLISTHESIS [None]
  - LUMBAR RADICULOPATHY [None]
  - TYPE 2 DIABETES MELLITUS [None]
  - AURICULAR PERICHONDRITIS [None]
  - INTERVERTEBRAL DISC PROTRUSION [None]
  - LUMBAR SPINAL STENOSIS [None]
  - FALL [None]
  - TOOTH DISORDER [None]
  - SPINAL CORD DISORDER [None]
  - PALPITATIONS [None]
  - PAIN IN EXTREMITY [None]
  - DIVERTICULITIS [None]
  - INTERVERTEBRAL DISC DEGENERATION [None]
  - OSTEOPOROSIS [None]
  - GAIT DISTURBANCE [None]
  - FATIGUE [None]
  - BREAST CYST [None]
  - SCIATICA [None]
  - MUSCULAR WEAKNESS [None]
  - HYPERLIPIDAEMIA [None]
  - FEMUR FRACTURE [None]
  - LACERATION [None]
  - ANAEMIA [None]
  - MAMMOGRAM ABNORMAL [None]
  - BLOOD DISORDER [None]
  - HYPOAESTHESIA [None]
  - MALIGNANT MELANOMA [None]
  - INCREASED TENDENCY TO BRUISE [None]
  - DEVICE FAILURE [None]
  - VITAMIN D DEFICIENCY [None]
  - PARESIS [None]
  - INFARCTION [None]
  - DEMYELINATION [None]
  - BREAST MASS [None]
  - BLOOD CHOLESTEROL INCREASED [None]
  - BACK PAIN [None]
  - FEMORAL NECK FRACTURE [None]
  - HYPERTENSION [None]
  - NEUROPATHY PERIPHERAL [None]
